FAERS Safety Report 19513438 (Version 1)
Quarter: 2021Q3

REPORT INFORMATION
  Report Type: Spontaneous
  Country: ES (occurrence: ES)
  Receive Date: 20210709
  Receipt Date: 20210709
  Transmission Date: 20211014
  Serious: Yes (Other)
  Sender: FDA-Public Use
  Company Number: ES-MYLANLABS-2021M1039303

PATIENT
  Age: 44 Year
  Sex: Female

DRUGS (1)
  1. TRASTUZUMAB MYLAN [Suspect]
     Active Substance: TRASTUZUMAB
     Indication: BREAST CANCER
     Dosage: UNK UNK, Q3W
     Route: 065

REACTIONS (1)
  - Papilloedema [Unknown]
